FAERS Safety Report 14258430 (Version 8)
Quarter: 2019Q3

REPORT INFORMATION
  Report Type: Spontaneous
  Country: US (occurrence: US)
  Receive Date: 20171207
  Receipt Date: 20190819
  Transmission Date: 20191004
  Serious: No
  Sender: FDA-Public Use
  Company Number: US-PFIZER INC-2017520126

PATIENT
  Sex: Female

DRUGS (1)
  1. CLINDAMYCIN HCL [Suspect]
     Active Substance: CLINDAMYCIN HYDROCHLORIDE
     Dosage: UNK

REACTIONS (3)
  - Vascular rupture [Unknown]
  - Tremor [Unknown]
  - Drug hypersensitivity [Unknown]
